FAERS Safety Report 6987773-9 (Version None)
Quarter: 2010Q3

REPORT INFORMATION
  Report Type: 
  Country: None (occurrence: None)
  Receive Date: 20100916
  Receipt Date: 20100908
  Transmission Date: 20110219
  Serious: Yes (Other)
  Sender: FDA-Public Use
  Company Number: PHHY2010US56742

PATIENT

DRUGS (3)
  1. VOLTAREN [Suspect]
     Indication: ARTHRITIS
  2. VOLTAREN [Suspect]
     Indication: ARTHRALGIA
  3. TYLENOL [Suspect]

REACTIONS (2)
  - DIARRHOEA HAEMORRHAGIC [None]
  - HEPATIC ENZYME INCREASED [None]
